FAERS Safety Report 9408869 (Version 3)
Quarter: 2013Q4

REPORT INFORMATION
  Report Type: Spontaneous
  Country: US (occurrence: US)
  Receive Date: 20130719
  Receipt Date: 20131004
  Transmission Date: 20140711
  Serious: Yes (Hospitalization, Other)
  Sender: FDA-Public Use
  Company Number: US-009507513-1307USA009910

PATIENT
  Sex: Male

DRUGS (8)
  1. EMEND [Suspect]
     Indication: PROPHYLAXIS OF NAUSEA AND VOMITING
     Dosage: 150 MG EVERY 2 WEEKS
     Route: 042
     Dates: start: 201209, end: 20130611
  2. ATIVAN [Concomitant]
  3. DEXAMETHASONE [Concomitant]
  4. DILAUDID [Concomitant]
  5. FENTANYL [Concomitant]
  6. LEUCOVORIN [Concomitant]
  7. ONDANSETRON [Concomitant]
  8. PHENERGAN [Concomitant]

REACTIONS (1)
  - Colon cancer stage IV [Unknown]
